FAERS Safety Report 6309021-5 (Version None)
Quarter: 2009Q3

REPORT INFORMATION
  Report Type: 
  Country: None (occurrence: None)
  Receive Date: 20090814
  Receipt Date: 20070531
  Transmission Date: 20100115
  Serious: Yes (Other)
  Sender: FDA-Public Use
  Company Number: US-ASTRAZENECA-2006UW11464

PATIENT
  Age: 16058 Day
  Sex: Male
  Weight: 91.6 kg

DRUGS (29)
  1. SEROQUEL [Suspect]
     Indication: DEPRESSION
     Route: 048
     Dates: start: 20040520
  2. LEXAPRO [Concomitant]
     Dates: start: 20050803
  3. PROVISIL [Concomitant]
  4. AMBIEN [Concomitant]
     Route: 048
     Dates: start: 20021202
  5. KETOPROFEN [Concomitant]
     Dates: start: 20030611
  6. INDOCIN [Concomitant]
     Route: 048
     Dates: start: 20030611
  7. TOPAMAX [Concomitant]
     Dosage: 50-100 MG, BID
     Route: 048
     Dates: start: 20021202
  8. DESIPRAMINE HCL [Concomitant]
     Dates: start: 20030103
  9. VIOXX [Concomitant]
     Dates: start: 20021202
  10. ALLEGRA [Concomitant]
     Dates: start: 20021202
  11. LIPITOR [Concomitant]
     Route: 048
     Dates: start: 20021202
  12. EFFEXOR [Concomitant]
     Dates: start: 20021202
  13. SKELAXIN [Concomitant]
     Dates: start: 20021202
  14. NEURONTIN [Concomitant]
     Dates: start: 20021202
  15. IMIPRAMINE [Concomitant]
     Dosage: 100-150 MG, 2 HOURS BEFORE BEDTIME
     Dates: start: 20021202
  16. ULTRAM [Concomitant]
     Dates: start: 20050301
  17. CIPROFLOXACIN [Concomitant]
     Dates: start: 20050301
  18. DICLOXACILL [Concomitant]
     Dates: start: 20050803
  19. ELAVIL [Concomitant]
     Dosage: 25-150 MG, QHS
     Route: 048
     Dates: start: 20040108
  20. INSULIN [Concomitant]
     Dates: start: 20021202
  21. LOXITANE [Concomitant]
     Dates: start: 20040519
  22. COGENTIN [Concomitant]
     Dates: start: 20040519
  23. NORTRIPTYLINE HCL [Concomitant]
     Dates: start: 20040427
  24. PROZAC [Concomitant]
     Dates: start: 20040520
  25. PAXIL [Concomitant]
     Dates: start: 20040520
  26. SERZONE [Concomitant]
     Dates: start: 20040520
  27. TRAZODONE HCL [Concomitant]
     Dates: start: 20040520
  28. VISTARIL [Concomitant]
     Dates: start: 20040520
  29. TEGRETOL [Concomitant]
     Dates: start: 20040520

REACTIONS (2)
  - DIABETES MELLITUS [None]
  - DIABETIC RETINOPATHY [None]
